FAERS Safety Report 6076717-2 (Version None)
Quarter: 2009Q1

REPORT INFORMATION
  Report Type: 
  Country: None (occurrence: None)
  Receive Date: 20090213
  Receipt Date: 20090205
  Transmission Date: 20090719
  Serious: Yes (Life-Threatening, Hospitalization, Other)
  Sender: FDA-Public Use
  Company Number: GB-NOVOPROD-283482

PATIENT
  Age: 55 Year
  Sex: Male

DRUGS (14)
  1. INSULATARD [Suspect]
     Indication: TYPE 2 DIABETES MELLITUS
     Dosage: UNK, UNK
     Route: 058
     Dates: start: 20090120, end: 20090121
  2. HUMAN MIXTARD 30 HM(GE) [Suspect]
     Indication: TYPE 2 DIABETES MELLITUS
     Dosage: 8 IU, BID
     Route: 058
     Dates: start: 20090121, end: 20090122
  3. ENOXAPARIN SODIUM [Concomitant]
     Dosage: 40 MG, QD
     Route: 058
     Dates: start: 20090113
  4. TAZOCIN [Concomitant]
     Dosage: 4.5 G, QD
     Route: 042
     Dates: start: 20090117, end: 20090122
  5. RANITIDINE [Concomitant]
     Dosage: 50 MG, TID
     Route: 042
     Dates: start: 20090115, end: 20090122
  6. RAMIPRIL [Concomitant]
     Dosage: 5 MG, QD
     Route: 048
     Dates: start: 19940101
  7. TAMSULOSIN HCL [Concomitant]
     Dosage: 10 ML, BID
     Dates: start: 20090120
  8. ATORVASTATIN [Concomitant]
     Dosage: 40 MG, QD
     Dates: start: 19940101
  9. ASPIRIN [Concomitant]
     Dosage: 75 MG, QD
     Route: 048
     Dates: start: 19940101
  10. PARACETAMOL [Concomitant]
     Dosage: 1 G, QID
     Route: 048
     Dates: start: 20080101
  11. PARACETAMOL [Concomitant]
     Dosage: UNK, QID
     Route: 042
     Dates: start: 20080101
  12. CREON                              /00014701/ [Concomitant]
     Dosage: 25000 UNK, TID
     Dates: start: 20090120
  13. CLARITHROMYCIN [Concomitant]
     Dosage: 250 MG, BID
     Dates: start: 20090120, end: 20090121
  14. SALBUTAMOL [Concomitant]
     Dosage: 5 MG, UNK
     Route: 055
     Dates: start: 20090123

REACTIONS (3)
  - BLISTER [None]
  - DIABETES MELLITUS INADEQUATE CONTROL [None]
  - LIP SWELLING [None]
